FAERS Safety Report 17331615 (Version 2)
Quarter: 2020Q1

REPORT INFORMATION
  Report Type: Spontaneous
  Country: US (occurrence: US)
  Receive Date: 20200128
  Receipt Date: 20200205
  Transmission Date: 20200409
  Serious: Yes (Other)
  Sender: FDA-Public Use
  Company Number: US-ASTRAZENECA-2020SE11257

PATIENT
  Age: 902 Month
  Sex: Male

DRUGS (2)
  1. PREVACID 24 HR [Suspect]
     Active Substance: LANSOPRAZOLE
     Indication: ACID PEPTIC DISEASE
     Dosage: BEGINNING PRIOR TO OR IN 2003 THROUGH AT LEAST 2017
     Route: 065
  2. PRILOSEC OTC [Suspect]
     Active Substance: OMEPRAZOLE MAGNESIUM
     Indication: ACID PEPTIC DISEASE
     Dosage: BEGINNING PRIOR TO OR IN 2003 THROUGH AT LEAST 2017
     Route: 048

REACTIONS (2)
  - Renal injury [Unknown]
  - Gastric cancer [Unknown]

NARRATIVE: CASE EVENT DATE: 201707
